FAERS Safety Report 12645335 (Version 1)
Quarter: 2016Q3

REPORT INFORMATION
  Report Type: Spontaneous
  Country: US (occurrence: US)
  Receive Date: 20160811
  Receipt Date: 20160811
  Transmission Date: 20161109
  Serious: No
  Sender: FDA-Public Use
  Company Number: US-JAZZ-2016-US-004556

PATIENT
  Sex: Female

DRUGS (15)
  1. FAMOTIDINE. [Concomitant]
     Active Substance: FAMOTIDINE
  2. XYREM [Suspect]
     Active Substance: SODIUM OXYBATE
     Indication: NARCOLEPSY
     Dosage: 2.5 G, BID
     Route: 048
     Dates: start: 201602
  3. IRON [Concomitant]
     Active Substance: IRON
  4. ADDERALL [Concomitant]
     Active Substance: AMPHETAMINE ASPARTATE\AMPHETAMINE SULFATE\DEXTROAMPHETAMINE SACCHARATE\DEXTROAMPHETAMINE SULFATE
  5. ALLERGY [Concomitant]
     Active Substance: UNSPECIFIED INGREDIENT
  6. PROBIOTIC [Concomitant]
     Active Substance: PROBIOTICS NOS
  7. SYMBICORT [Concomitant]
     Active Substance: BUDESONIDE\FORMOTEROL FUMARATE DIHYDRATE
  8. IBUPROFEN. [Concomitant]
     Active Substance: IBUPROFEN
  9. VENTOLIN [Concomitant]
     Active Substance: ALBUTEROL SULFATE
  10. VITAMIN B2 [Concomitant]
     Active Substance: RIBOFLAVIN
  11. VITAMIN D [Concomitant]
     Active Substance: CHOLECALCIFEROL
  12. ALBUTEROL. [Concomitant]
     Active Substance: ALBUTEROL
  13. SINGULAIR [Concomitant]
     Active Substance: MONTELUKAST SODIUM
  14. CLARITIN [Concomitant]
     Active Substance: LORATADINE
  15. MAGNESIUM [Concomitant]
     Active Substance: MAGNESIUM

REACTIONS (2)
  - Therapeutic response unexpected [Not Recovered/Not Resolved]
  - Menstrual disorder [Unknown]

NARRATIVE: CASE EVENT DATE: 2016
